FAERS Safety Report 4785564-0 (Version None)
Quarter: 2005Q4

REPORT INFORMATION
  Report Type: 
  Country: None (occurrence: None)
  Receive Date: 20051003
  Receipt Date: 20041203
  Transmission Date: 20060501
  Serious: Yes (Other)
  Sender: FDA-Public Use
  Company Number: GB-GLAXOSMITHKLINE-B0359742A

PATIENT
  Sex: Male

DRUGS (5)
  1. SEROXAT [Suspect]
     Route: 065
     Dates: end: 19960101
  2. DIAZEPAM [Suspect]
     Route: 065
  3. ALCOHOL [Suspect]
     Route: 065
  4. FLUANXOL [Suspect]
     Route: 065
  5. ZIMOVANE [Suspect]
     Route: 065

REACTIONS (11)
  - ALCOHOL USE [None]
  - ANGER [None]
  - COMPLETED SUICIDE [None]
  - DEPRESSION [None]
  - DRUG DEPENDENCE [None]
  - HOMICIDAL IDEATION [None]
  - MULTIPLE DRUG OVERDOSE [None]
  - OVERDOSE [None]
  - SELF MUTILATION [None]
  - SUICIDAL IDEATION [None]
  - SUICIDE ATTEMPT [None]
